FAERS Safety Report 11449228 (Version 1)
Quarter: 2015Q3

REPORT INFORMATION
  Report Type: Spontaneous
  Country: IT (occurrence: IT)
  Receive Date: 20150902
  Receipt Date: 20150902
  Transmission Date: 20151125
  Serious: Yes (Other)
  Sender: FDA-Public Use
  Company Number: IT-GILEAD-2015-0170038

PATIENT
  Age: 66 Year
  Sex: Male
  Weight: 85 kg

DRUGS (6)
  1. OLYSIO [Interacting]
     Active Substance: SIMEPREVIR
     Indication: HEPATITIS C
     Dosage: 150 MG, QD
     Route: 048
     Dates: start: 20150522, end: 20150611
  2. SOVALDI [Suspect]
     Active Substance: SOFOSBUVIR
     Indication: HEPATITIS C
     Dosage: 400 MG, QD
     Route: 048
     Dates: start: 20150522, end: 20150611
  3. RIBAVIRIN. [Interacting]
     Active Substance: RIBAVIRIN
     Indication: HEPATIC CIRRHOSIS
  4. RIBAVIRIN. [Interacting]
     Active Substance: RIBAVIRIN
     Indication: HEPATITIS C
     Dosage: 1 G, QD
     Route: 048
     Dates: start: 20150522, end: 20150611
  5. SOVALDI [Interacting]
     Active Substance: SOFOSBUVIR
     Indication: HEPATIC CIRRHOSIS
  6. OLYSIO [Interacting]
     Active Substance: SIMEPREVIR
     Indication: HEPATIC CIRRHOSIS

REACTIONS (4)
  - Blister [Recovering/Resolving]
  - Drug interaction [Recovering/Resolving]
  - Speech disorder [Recovering/Resolving]
  - Thought blocking [Recovering/Resolving]

NARRATIVE: CASE EVENT DATE: 20150609
